FAERS Safety Report 17016039 (Version 1)
Quarter: 2019Q4

REPORT INFORMATION
  Report Type: Spontaneous
  Country: US (occurrence: US)
  Receive Date: 20191003
  Receipt Date: 20191003
  Transmission Date: 20200122
  Serious: Yes (Other)
  Sender: FDA-Public Use
  Company Number: None

PATIENT
  Age: 76 Year
  Sex: Male
  Weight: 83.91 kg

DRUGS (7)
  1. ATORVASTATIN [Concomitant]
     Active Substance: ATORVASTATIN
  2. TAMSULOSIN [Concomitant]
     Active Substance: TAMSULOSIN
  3. VIT B1 [Concomitant]
     Active Substance: THIAMINE HYDROCHLORIDE
  4. VITAMIN B12 [Concomitant]
     Active Substance: CYANOCOBALAMIN
  5. VIT D [Concomitant]
     Active Substance: VITAMIN D NOS
  6. RAMIPRIL. [Concomitant]
     Active Substance: RAMIPRIL
  7. GABAPENTIN 800MG [Suspect]
     Active Substance: GABAPENTIN
     Indication: NEUROPATHY PERIPHERAL
     Dosage: ?          QUANTITY:4 PER DAY;OTHER FREQUENCY:1-4 TIMES A DAY ;?
     Route: 048
     Dates: start: 20190818

REACTIONS (3)
  - Pain in extremity [None]
  - Drug ineffective [None]
  - Product complaint [None]

NARRATIVE: CASE EVENT DATE: 20190818
